FAERS Safety Report 7723459-0 (Version None)
Quarter: 2011Q3

REPORT INFORMATION
  Report Type: 
  Country: None (occurrence: None)
  Receive Date: 20110901
  Receipt Date: 20110825
  Transmission Date: 20111222
  Serious: No
  Sender: FDA-Public Use
  Company Number: US-PFIZER INC-2011199298

PATIENT
  Age: 58 Year
  Sex: Female
  Weight: 74.785 kg

DRUGS (3)
  1. LIPITOR [Suspect]
     Dosage: UNK
  2. SYNTHROID [Suspect]
     Dosage: UNK
  3. NIACIN [Suspect]
     Dosage: UNK

REACTIONS (2)
  - RASH GENERALISED [None]
  - RASH ERYTHEMATOUS [None]
